FAERS Safety Report 15964675 (Version 2)
Quarter: 2019Q1

REPORT INFORMATION
  Report Type: Spontaneous
  Country: US (occurrence: US)
  Receive Date: 20190215
  Receipt Date: 20190225
  Transmission Date: 20190418
  Serious: Yes (Other)
  Sender: FDA-Public Use
  Company Number: US-CIPLA LTD.-2019US00814

PATIENT

DRUGS (5)
  1. ALENDRONATE [Suspect]
     Active Substance: ALENDRONATE SODIUM
     Indication: OSTEOPOROSIS
     Dosage: 70 MILLIGRAM, ONCE A WEEK
     Route: 048
     Dates: start: 201711, end: 201809
  2. LIPITOR [Concomitant]
     Active Substance: ATORVASTATIN CALCIUM
     Dosage: 40 MILLIGRAM (DOSE INCREASED), QD
     Route: 065
  3. LIPITOR [Concomitant]
     Active Substance: ATORVASTATIN CALCIUM
     Indication: BLOOD CHOLESTEROL INCREASED
     Dosage: 20 MILLIGRAM (COUPLE OF YEARS AGO)
     Route: 065
  4. FLONASTER [Concomitant]
     Indication: SINUS DISORDER
     Dosage: UNK
     Route: 065
  5. PR AMAZON INHALER [Concomitant]
     Indication: SINUS DISORDER
     Dosage: UNK
     Route: 065

REACTIONS (18)
  - Pain [Unknown]
  - Osteonecrosis of jaw [Not Recovered/Not Resolved]
  - Dysphonia [Recovered/Resolved]
  - Lacrimation increased [Unknown]
  - Throat tightness [Recovered/Resolved]
  - Palpitations [Recovered/Resolved]
  - Dizziness [Recovered/Resolved]
  - Weight decreased [Recovering/Resolving]
  - Dyspnoea [Recovered/Resolved]
  - Glare [Unknown]
  - Rash [Unknown]
  - Abdominal pain upper [Recovered/Resolved]
  - Ocular hyperaemia [Recovered/Resolved]
  - Diarrhoea [Recovered/Resolved]
  - Tooth loss [Unknown]
  - Hyperhidrosis [Recovered/Resolved]
  - Abdominal distension [Recovered/Resolved]
  - Feeling abnormal [Recovered/Resolved]

NARRATIVE: CASE EVENT DATE: 201803
